FAERS Safety Report 10492282 (Version 1)
Quarter: 2014Q4

REPORT INFORMATION
  Report Type: Spontaneous
  Country: US (occurrence: US)
  Receive Date: 20141002
  Receipt Date: 20141002
  Transmission Date: 20150528
  Serious: No
  Sender: FDA-Public Use
  Company Number: US-GLAXOSMITHKLINE-A1068689A

PATIENT
  Age: 56 Year
  Sex: Female

DRUGS (3)
  1. DILANTIN [Concomitant]
     Active Substance: PHENYTOIN
  2. ADVAIR HFA [Suspect]
     Active Substance: FLUTICASONE PROPIONATE\SALMETEROL XINAFOATE
     Indication: CHRONIC OBSTRUCTIVE PULMONARY DISEASE
     Dosage: 1PUFF PER DAY
     Route: 055
     Dates: start: 2005
  3. KEPPRA [Concomitant]
     Active Substance: LEVETIRACETAM

REACTIONS (3)
  - Glossodynia [Not Recovered/Not Resolved]
  - Ageusia [Not Recovered/Not Resolved]
  - Tongue ulceration [Not Recovered/Not Resolved]

NARRATIVE: CASE EVENT DATE: 2013
